FAERS Safety Report 8571034-0 (Version None)
Quarter: 2012Q3

REPORT INFORMATION
  Report Type: 
  Country: None (occurrence: None)
  Receive Date: 20120806
  Receipt Date: 20120727
  Transmission Date: 20120928
  Serious: No
  Sender: FDA-Public Use
  Company Number: US-009507513-1207USA011501

PATIENT

DRUGS (1)
  1. IMPLANON [Suspect]
     Dosage: UNK

REACTIONS (3)
  - ARTHRALGIA [None]
  - FALL [None]
  - BACK PAIN [None]
